FAERS Safety Report 9471150 (Version 1)
Quarter: 2013Q3

REPORT INFORMATION
  Report Type: Spontaneous
  Country: None (occurrence: BR)
  Receive Date: 20130822
  Receipt Date: 20130822
  Transmission Date: 20140515
  Serious: Yes (Other)
  Sender: FDA-Public Use
  Company Number: BR-EISAI INC-E3810-06605-SPO-BR

PATIENT
  Age: 11 Year
  Sex: Male
  Weight: 45 kg

DRUGS (1)
  1. PARIET (RABEPRAZOLE) [Suspect]
     Indication: GASTRITIS
     Dosage: UNKNOWN
     Route: 048
     Dates: start: 20120705, end: 201210

REACTIONS (5)
  - Haematoma [Not Recovered/Not Resolved]
  - Off label use [Recovered/Resolved]
  - Eosinophil count increased [Unknown]
  - Blood immunoglobulin E increased [Unknown]
  - Antineutrophil cytoplasmic antibody decreased [Unknown]
